FAERS Safety Report 8537765 (Version 3)
Quarter: 2012Q4

REPORT INFORMATION
  Report Type: 
  Country: US (occurrence: US)
  Receive Date: 20120501
  Receipt Date: 20121203
  Transmission Date: 20130627
  Serious: Yes (Other)
  Sender: FDA-Public Use
  Company Number: US-ASTRAZENECA-2012SE26896

PATIENT
  Age: 51 Year
  Sex: Female
  Weight: 96.6 kg

DRUGS (1)
  1. TOPROL XL [Suspect]
     Indication: HYPERTENSION
     Route: 048
     Dates: start: 20070425

REACTIONS (3)
  - Papillary thyroid cancer [Unknown]
  - Hyperthyroidism [Unknown]
  - Blood pressure decreased [Unknown]
